FAERS Safety Report 7720289-0 (Version None)
Quarter: 2011Q3

REPORT INFORMATION
  Report Type: 
  Country: None (occurrence: None)
  Receive Date: 20110825
  Receipt Date: 20110812
  Transmission Date: 20111222
  Serious: Yes (Hospitalization, Other)
  Sender: FDA-Public Use
  Company Number: IPC201108-003135

PATIENT
  Age: 82 Year
  Sex: Female

DRUGS (6)
  1. CLOPIDOGREL [Suspect]
  2. METFORMIN HYDROCHLORIDE [Suspect]
     Indication: TYPE 2 DIABETES MELLITUS
     Dosage: 500 MG/DAY, ORAL
     Route: 048
  3. GABAPENTIN [Suspect]
  4. METOPROLOL TARTRATE [Suspect]
  5. OLMESARTAN MEDOXOMIL [Suspect]
  6. SITAGLIPTIN [Suspect]
     Dosage: 50 MG/DAY

REACTIONS (4)
  - FAECAL INCONTINENCE [None]
  - DIABETES MELLITUS INADEQUATE CONTROL [None]
  - NEURALGIA [None]
  - CONDITION AGGRAVATED [None]
